FAERS Safety Report 8584814 (Version 2)
Quarter: 2012Q4

REPORT INFORMATION
  Report Type: 
  Country: US (occurrence: US)
  Receive Date: 20120529
  Receipt Date: 20120905
  Transmission Date: 20130627
  Serious: Yes (Death, Hospitalization)
  Sender: FDA-Public Use
  Company Number: US-FRI-1000029900

PATIENT
  Age: 83 Year
  Sex: Female
  Weight: 45.3 kg

DRUGS (1)
  1. TEFLARO [Suspect]
     Indication: PNEUMONIA
     Dosage: 600 mg
     Route: 042

REACTIONS (2)
  - Cerebrovascular accident [Fatal]
  - Haemolytic anaemia [Unknown]
